FAERS Safety Report 12443895 (Version 1)
Quarter: 2016Q2

REPORT INFORMATION
  Report Type: Spontaneous
  Country: US (occurrence: US)
  Receive Date: 20160607
  Receipt Date: 20160607
  Transmission Date: 20160815
  Serious: Yes (Other)
  Sender: FDA-Public Use
  Company Number: US-SA-2016SA045801

PATIENT
  Age: 69 Year
  Sex: Female

DRUGS (7)
  1. LANTUS [Concomitant]
     Active Substance: INSULIN GLARGINE
     Dosage: DOSE: 7-15 U
     Dates: end: 201512
  2. NOVOLIN R [Concomitant]
     Active Substance: INSULIN HUMAN
     Dates: end: 201512
  3. TOUJEO [Suspect]
     Active Substance: INSULIN GLARGINE
     Indication: DIABETES MELLITUS
     Dosage: DOSE:11 UNIT(S)
     Route: 065
     Dates: start: 201512
  4. TOUJEO [Suspect]
     Active Substance: INSULIN GLARGINE
     Indication: DIABETES MELLITUS
     Dosage: DOSE:32 UNIT(S)
     Route: 065
  5. GLIPIZIDE/METFORMIN HYDROCHLORIDE [Concomitant]
     Dates: end: 201512
  6. SOLOSTAR [Concomitant]
     Active Substance: DEVICE
     Dates: start: 201512
  7. TOUJEO [Suspect]
     Active Substance: INSULIN GLARGINE
     Indication: DIABETES MELLITUS
     Dosage: DOSE:20 UNIT(S)
     Route: 065

REACTIONS (2)
  - Blood glucose abnormal [Unknown]
  - Hypoglycaemia [Unknown]
